FAERS Safety Report 5732434-7 (Version None)
Quarter: 2008Q2

REPORT INFORMATION
  Report Type: 
  Country: None (occurrence: None)
  Receive Date: 20080507
  Receipt Date: 20080423
  Transmission Date: 20081010
  Serious: Yes (Other)
  Sender: FDA-Public Use
  Company Number: ENTC2008-0127

PATIENT
  Sex: Male

DRUGS (2)
  1. STALEVO 100 [Suspect]
     Indication: PARKINSON'S DISEASE
     Dosage: 600/150/800 MG , ORAL
     Route: 048
  2. PRAMIPEXOLE DIHYDROCHLORIDE [Suspect]
     Indication: PARKINSON'S DISEASE
     Dosage: PROGRESSIVE DOSAGE, ORAL
     Route: 048
     Dates: start: 20080219

REACTIONS (4)
  - BLOOD PRESSURE SYSTOLIC DECREASED [None]
  - INCORRECT DOSE ADMINISTERED [None]
  - MALAISE [None]
  - MUSCULAR WEAKNESS [None]
